FAERS Safety Report 4962551-0 (Version None)
Quarter: 2006Q1

REPORT INFORMATION
  Report Type: 
  Country: None (occurrence: None)
  Receive Date: 20060201
  Receipt Date: 20051119
  Transmission Date: 20060701
  Serious: No
  Sender: FDA-Public Use
  Company Number: 2005PV004565

PATIENT
  Age: 74 Year
  Sex: Male
  Weight: 104.3273 kg

DRUGS (9)
  1. BYETTA [Suspect]
     Indication: DIABETES MELLITUS NON-INSULIN-DEPENDENT
     Dosage: 5 MCG, BID, SC
     Route: 058
     Dates: start: 20051117
  2. PROPRANOLOL [Concomitant]
  3. BENICOR [Concomitant]
  4. COUMADIN [Concomitant]
  5. ASPIRIN [Concomitant]
  6. AVANDIA [Concomitant]
  7. GLIPIZIDE [Concomitant]
  8. AMBIEN [Concomitant]
  9. TYLENOL (CAPLET) [Concomitant]

REACTIONS (6)
  - ATRIAL FIBRILLATION [None]
  - DECREASED APPETITE [None]
  - LETHARGY [None]
  - TONGUE DISORDER [None]
  - WEIGHT [None]
  - WEIGHT DECREASED [None]
